FAERS Safety Report 10646895 (Version 1)
Quarter: 2014Q4

REPORT INFORMATION
  Report Type: Spontaneous
  Country: US (occurrence: US)
  Receive Date: 20141211
  Receipt Date: 20141211
  Transmission Date: 20150529
  Serious: Yes (Other)
  Sender: FDA-Public Use
  Company Number: US-ASTRAZENECA-2014SE94199

PATIENT
  Sex: Female
  Weight: 68 kg

DRUGS (9)
  1. THYROD MEDICATION [Concomitant]
     Indication: THYROID DISORDER
  2. ASPIRIN. [Concomitant]
     Active Substance: ASPIRIN
  3. ISOSORBIDE MMER [Concomitant]
     Indication: NECK PAIN
  4. CRESTOR [Suspect]
     Active Substance: ROSUVASTATIN CALCIUM
     Indication: BLOOD CHOLESTEROL INCREASED
     Dosage: 10 MG, THREE TIMES PER WEEK
     Route: 048
  5. SENIOR MULTI-VITAMIN [Concomitant]
  6. CALCIUM [Concomitant]
     Active Substance: CALCIUM
     Indication: BONE DISORDER
  7. SELINIUM [Concomitant]
     Indication: WEIGHT INCREASED
     Dates: start: 201411
  8. VITAMIN D [Concomitant]
     Active Substance: CHOLECALCIFEROL
     Indication: VITAMIN D DEFICIENCY
     Dates: start: 201410
  9. COD LIVER OIL TABLET [Concomitant]
     Indication: PROPHYLAXIS

REACTIONS (9)
  - Weight increased [Unknown]
  - Blood cholesterol increased [Unknown]
  - Amnesia [Unknown]
  - Myalgia [Unknown]
  - Pseudoangina [Unknown]
  - Vitamin D decreased [Unknown]
  - Off label use [Unknown]
  - Night sweats [Unknown]
  - Hypothyroidism [Unknown]

NARRATIVE: CASE EVENT DATE: 2013
